FAERS Safety Report 7890795-7 (Version None)
Quarter: 2011Q4

REPORT INFORMATION
  Report Type: 
  Country: None (occurrence: None)
  Receive Date: 20111103
  Receipt Date: 20110725
  Transmission Date: 20120403
  Serious: No
  Sender: FDA-Public Use
  Company Number: US-AMGEN-USASP2011037734

PATIENT
  Age: 51 Year
  Sex: Male

DRUGS (3)
  1. METHOTREXATE [Concomitant]
     Dosage: 1 MG, QWK
     Dates: start: 20110301
  2. PREDNISONE [Concomitant]
     Dosage: UNK
  3. ENBREL [Suspect]
     Indication: RHEUMATOID ARTHRITIS
     Dosage: 50 MG, QWK
     Dates: start: 20110628

REACTIONS (3)
  - ARTHRALGIA [None]
  - MOOD ALTERED [None]
  - URTICARIA [None]
